FAERS Safety Report 4853546-6 (Version None)
Quarter: 2005Q4

REPORT INFORMATION
  Report Type: 
  Country: None (occurrence: None)
  Receive Date: 20051214
  Receipt Date: 20051027
  Transmission Date: 20060501
  Serious: Yes (Death, Other)
  Sender: FDA-Public Use
  Company Number: BR-JNJFOC-20050902629

PATIENT
  Age: 58 Year
  Sex: Female

DRUGS (2)
  1. CAELYX [Suspect]
     Route: 042
  2. CAELYX [Suspect]
     Indication: OVARIAN CANCER
     Route: 042

REACTIONS (4)
  - COMPLETED SUICIDE [None]
  - HYPERBILIRUBINAEMIA [None]
  - JAUNDICE [None]
  - TRANSAMINASES INCREASED [None]
